FAERS Safety Report 20229435 (Version 1)
Quarter: 2021Q4

REPORT INFORMATION
  Report Type: Spontaneous
  Country: US (occurrence: US)
  Receive Date: 20211225
  Receipt Date: 20211225
  Transmission Date: 20220303
  Serious: Yes (Other)
  Sender: FDA-Public Use
  Company Number: US-SA-SAC20211224000234

PATIENT
  Age: 51 Year
  Sex: Female

DRUGS (1)
  1. DUPIXENT [Suspect]
     Active Substance: DUPILUMAB
     Indication: Eczema herpeticum
     Dosage: 300 MG, QOW
     Route: 058
     Dates: start: 20201014

REACTIONS (5)
  - Psoriatic arthropathy [Unknown]
  - Arthralgia [Unknown]
  - Asthenia [Unknown]
  - Product use in unapproved indication [Unknown]
  - Therapeutic response shortened [Unknown]

NARRATIVE: CASE EVENT DATE: 20201014
